FAERS Safety Report 15211845 (Version 1)
Quarter: 2018Q3

REPORT INFORMATION
  Report Type: Spontaneous
  Country: DE (occurrence: DE)
  Receive Date: 20180729
  Receipt Date: 20180729
  Transmission Date: 20181010
  Serious: Yes (Hospitalization)
  Sender: FDA-Public Use
  Company Number: PHHY2018DE055032

PATIENT
  Sex: Male

DRUGS (2)
  1. RYDAPT [Suspect]
     Active Substance: MIDOSTAURIN
     Dosage: 100 MG, BID (4 SOFT CAPSULES IN THE MORNING AND 4 SOFT CAPSULES IN THE EVENING )
     Route: 065
     Dates: start: 201807
  2. RYDAPT [Suspect]
     Active Substance: MIDOSTAURIN
     Indication: PRODUCT USED FOR UNKNOWN INDICATION
     Dosage: 100 MG BID (4 SOFT CAPSULES IN THE MORNING AND 4 SOFT CAPSULES IN THE EVENING )100 MG, BID
     Route: 065
     Dates: start: 20180712

REACTIONS (3)
  - Renal disorder [Unknown]
  - Vomiting [Unknown]
  - Pulmonary oedema [Unknown]

NARRATIVE: CASE EVENT DATE: 20180714
